FAERS Safety Report 10661873 (Version 1)
Quarter: 2014Q4

REPORT INFORMATION
  Report Type: Spontaneous
  Country: BR (occurrence: BR)
  Receive Date: 20141218
  Receipt Date: 20141218
  Transmission Date: 20150529
  Serious: Yes (Hospitalization, Other)
  Sender: FDA-Public Use
  Company Number: BR-ABBVIE-14K-020-1320235-00

PATIENT
  Age: 32 Year
  Sex: Male

DRUGS (6)
  1. HUMIRA [Suspect]
     Active Substance: ADALIMUMAB
     Indication: CROHN^S DISEASE
     Dosage: UPECIFIED LOADING DOSE
     Route: 058
  2. DRAMAMINE [Suspect]
     Active Substance: DIMENHYDRINATE
     Indication: MUSCLE SPASMS
  3. PLASIL [Suspect]
     Active Substance: METOCLOPRAMIDE HYDROCHLORIDE
     Indication: DYSPEPSIA
     Route: 065
  4. DRAMAMINE [Suspect]
     Active Substance: DIMENHYDRINATE
     Indication: DYSPEPSIA
     Route: 065
  5. PLASIL [Suspect]
     Active Substance: METOCLOPRAMIDE HYDROCHLORIDE
     Indication: MUSCLE SPASMS
  6. HUMIRA [Suspect]
     Active Substance: ADALIMUMAB
     Route: 058

REACTIONS (15)
  - Head injury [Unknown]
  - Crohn^s disease [Recovered/Resolved]
  - Muscle spasms [Recovered/Resolved]
  - Road traffic accident [Recovering/Resolving]
  - Anal fissure [Recovered/Resolved]
  - Somnolence [Unknown]
  - Dyspepsia [Unknown]
  - Splenic rupture [Recovering/Resolving]
  - Hip fracture [Recovering/Resolving]
  - Purulent discharge [Recovered/Resolved]
  - Urinary tract infection [Recovered/Resolved]
  - Muscle spasms [Unknown]
  - Haemorrhage [Recovering/Resolving]
  - Pneumothorax [Recovering/Resolving]
  - Constipation [Recovered/Resolved]

NARRATIVE: CASE EVENT DATE: 20141105
